FAERS Safety Report 4569401-5 (Version None)
Quarter: 2005Q1

REPORT INFORMATION
  Report Type: 
  Country: None (occurrence: None)
  Receive Date: 20050201
  Receipt Date: 20050119
  Transmission Date: 20050727
  Serious: Yes (Other)
  Sender: FDA-Public Use
  Company Number: 2005015817

PATIENT
  Age: 81 Year
  Sex: Male

DRUGS (5)
  1. DIFLUCAN [Suspect]
     Indication: PNEUMONIA BACTERIAL
     Dosage: 200 MG, ONCE OR TWICE DAILY, ORAL
     Route: 048
     Dates: start: 20050102
  2. GLIPIZIDE [Suspect]
     Indication: ILL-DEFINED DISORDER
     Dosage: ORAL
     Route: 048
     Dates: end: 20050105
  3. GATIFLOXACIN [Suspect]
     Indication: PNEUMONIA BACTERIAL
     Dosage: ORAL
     Route: 048
     Dates: start: 20050102, end: 20050101
  4. CARVEDILOL [Suspect]
     Indication: ILL-DEFINED DISORDER
     Dosage: 25 M G (12.5 MG, 2 IN 1 D), ORAL
     Route: 048
     Dates: end: 20050101
  5. FUROSEMIDE (FUROSEMIDE) [Concomitant]

REACTIONS (5)
  - BLOOD CREATININE INCREASED [None]
  - BLOOD GLUCOSE INCREASED [None]
  - BLOOD INSULIN DECREASED [None]
  - CARDIAC FAILURE CONGESTIVE [None]
  - HYPOGLYCAEMIA [None]
